FAERS Safety Report 4653820-2 (Version None)
Quarter: 2005Q2

REPORT INFORMATION
  Report Type: 
  Country: None (occurrence: None)
  Receive Date: 20050504
  Receipt Date: 20050420
  Transmission Date: 20051028
  Serious: Yes (Hospitalization)
  Sender: FDA-Public Use
  Company Number: 2005US000500

PATIENT
  Age: 62 Year
  Sex: Male

DRUGS (13)
  1. PROGRAF [Suspect]
     Indication: PROPHYLAXIS AGAINST TRANSPLANT REJECTION
     Dosage: 2.00 MG, UID/QD, ORAL
     Route: 048
     Dates: start: 20041216
  2. MYCOPHENOLATE MOFETIL (MYCOPHENOLATE MOFETIL) [Suspect]
     Indication: PROPHYLAXIS AGAINST TRANSPLANT REJECTION
     Dosage: 1000.00 MG, BID, ORAL
     Route: 048
     Dates: start: 20041216
  3. SIMULECT [Suspect]
     Indication: PROPHYLAXIS AGAINST TRANSPLANT REJECTION
     Dosage: 20.00 MG, UID/QD, IV NOS
     Route: 042
     Dates: start: 20041216, end: 20041220
  4. DEXAMETHASONE SODIUM PHOSPHATE [Suspect]
     Indication: PROPHYLAXIS AGAINST TRANSPLANT REJECTION
     Dosage: 60.00 MG, UID/QD
     Dates: start: 20041220, end: 20041220
  5. PREDNISONE [Suspect]
     Indication: PROPHYLAXIS AGAINST TRANSPLANT REJECTION
     Dosage: 50.00 MG, UID/QD, ORAL
     Route: 048
     Dates: start: 20041221, end: 20041222
  6. VALGANCICLOVIR (VALGANCICLOVIR) [Concomitant]
  7. BACTRIM [Concomitant]
  8. LIPITOR [Concomitant]
  9. LOPRESSOR [Concomitant]
  10. PROTONIX [Concomitant]
  11. ASPIRIN [Concomitant]
  12. NORVASC /DEN/(AMLOPIDINE BESILATE) [Concomitant]
  13. PROCRIT [Concomitant]

REACTIONS (1)
  - ARTERIAL THROMBOSIS [None]
